FAERS Safety Report 26096304 (Version 1)
Quarter: 2025Q4

REPORT INFORMATION
  Report Type: Spontaneous
  Country: VN (occurrence: VN)
  Receive Date: 20251127
  Receipt Date: 20251127
  Transmission Date: 20260117
  Serious: No
  Sender: ALKEM
  Company Number: VN-ALKEM LABORATORIES LIMITED-VN-ALKEM-2025-07658

PATIENT

DRUGS (1)
  1. METFORMIN HYDROCHLORIDE [Suspect]
     Active Substance: METFORMIN HYDROCHLORIDE
     Indication: Obesity
     Dosage: UNK
     Route: 065

REACTIONS (1)
  - Vomiting [Unknown]
